FAERS Safety Report 15926872 (Version 1)
Quarter: 2019Q1

REPORT INFORMATION
  Report Type: Spontaneous
  Country: US (occurrence: US)
  Receive Date: 20190206
  Receipt Date: 20190206
  Transmission Date: 20190417
  Serious: No
  Sender: FDA-Public Use
  Company Number: US-LUNDBECK-DKLU2059802

PATIENT
  Age: 75 Year
  Sex: Male

DRUGS (6)
  1. NORTHERA [Suspect]
     Active Substance: DROXIDOPA
     Dosage: DAYS 9 AND 10
     Route: 048
  2. NORTHERA [Suspect]
     Active Substance: DROXIDOPA
     Dosage: DAYS 3 AND 4
     Route: 048
  3. NORTHERA [Suspect]
     Active Substance: DROXIDOPA
     Indication: ORTHOSTATIC HYPOTENSION
     Dosage: DAYS 1 AND 2
     Route: 048
  4. NORTHERA [Suspect]
     Active Substance: DROXIDOPA
     Dosage: DAYS 7 AND 8
     Route: 048
  5. NORTHERA [Suspect]
     Active Substance: DROXIDOPA
     Dosage: DAY 11 AND THEREAFTER
     Route: 048
  6. NORTHERA [Suspect]
     Active Substance: DROXIDOPA
     Dosage: DAYS 5 SND 6
     Route: 048

REACTIONS (3)
  - Dry mouth [Unknown]
  - Fall [Unknown]
  - Dyspnoea exertional [Unknown]

NARRATIVE: CASE EVENT DATE: 20190128
